FAERS Safety Report 19462606 (Version 1)
Quarter: 2021Q2

REPORT INFORMATION
  Report Type: Report from Study
  Country: None (occurrence: US)
  Receive Date: 20210625
  Receipt Date: 20210625
  Transmission Date: 20210717
  Serious: Yes (Other)
  Sender: FDA-Public Use
  Company Number: US-ABBVIE-21K-163-3959402-00

PATIENT
  Sex: Female

DRUGS (1)
  1. VENCLEXTA [Suspect]
     Active Substance: VENETOCLAX
     Indication: PLASMA CELL MYELOMA
     Route: 048
     Dates: start: 20210223

REACTIONS (6)
  - Diarrhoea [Not Recovered/Not Resolved]
  - Vertebral lesion [Recovered/Resolved]
  - Haematocrit decreased [Not Recovered/Not Resolved]
  - Clostridium test positive [Not Recovered/Not Resolved]
  - Anaemia [Not Recovered/Not Resolved]
  - Light chain analysis increased [Not Recovered/Not Resolved]
